FAERS Safety Report 4446438-8 (Version None)
Quarter: 2004Q3

REPORT INFORMATION
  Report Type: 
  Country: None (occurrence: None)
  Receive Date: 20040908
  Receipt Date: 20040823
  Transmission Date: 20050211
  Serious: Yes (Hospitalization)
  Sender: FDA-Public Use
  Company Number: 203474

PATIENT
  Age: 45 Year
  Sex: Female
  Weight: 59.4212 kg

DRUGS (2)
  1. AVONEX [Suspect]
     Indication: MULTIPLE SCLEROSIS
     Dosage: 30 MCG QW IM
     Route: 030
     Dates: start: 20000101, end: 20030101
  2. AVONEX [Suspect]
     Indication: MULTIPLE SCLEROSIS
     Dosage: 30 MCG QW IM
     Route: 030
     Dates: start: 20030101, end: 20040401

REACTIONS (9)
  - BLOOD PRESSURE INCREASED [None]
  - CEREBROVASCULAR ACCIDENT [None]
  - COMA [None]
  - DEPRESSION [None]
  - HEPATIC FAILURE [None]
  - MALAISE [None]
  - MYOCARDIAL INFARCTION [None]
  - PYREXIA [None]
  - RENAL FAILURE [None]
